FAERS Safety Report 4915100-7 (Version None)
Quarter: 2006Q1

REPORT INFORMATION
  Report Type: 
  Country: None (occurrence: None)
  Receive Date: 20060215
  Receipt Date: 20060215
  Transmission Date: 20060701
  Serious: Yes (Hospitalization)
  Sender: FDA-Public Use
  Company Number: None

PATIENT
  Sex: Female
  Weight: 115 kg

DRUGS (2)
  1. KETEK [Suspect]
     Indication: BRONCHITIS ACUTE
     Dosage: 400MG BID PO
     Route: 048
     Dates: start: 20060120, end: 20060120
  2. MAXZIDE [Concomitant]

REACTIONS (1)
  - RHABDOMYOLYSIS [None]
